FAERS Safety Report 22256835 (Version 1)
Quarter: 2023Q2

REPORT INFORMATION
  Report Type: Other
  Country: CA (occurrence: CA)
  Receive Date: 20230426
  Receipt Date: 20230426
  Transmission Date: 20230721
  Serious: Yes (Other)
  Sender: FDA-Public Use
  Company Number: CA-CELLTRION INC.-2023CA008579

PATIENT

DRUGS (1)
  1. RITUXIMAB [Suspect]
     Active Substance: RITUXIMAB
     Indication: Rheumatoid arthritis
     Dosage: 1000.0 MILLIGRAM
     Route: 042

REACTIONS (6)
  - Chronic obstructive pulmonary disease [Unknown]
  - Malaise [Unknown]
  - Gait disturbance [Unknown]
  - Dyspnoea [Unknown]
  - Pneumonia [Unknown]
  - Pain [Unknown]
